FAERS Safety Report 8261808-8 (Version None)
Quarter: 2012Q2

REPORT INFORMATION
  Report Type: 
  Country: None (occurrence: None)
  Receive Date: 20120405
  Receipt Date: 20120329
  Transmission Date: 20120825
  Serious: Yes (Hospitalization)
  Sender: FDA-Public Use
  Company Number: US-BRISTOL-MYERS SQUIBB COMPANY-16216921

PATIENT
  Age: 77 Year
  Sex: Female
  Weight: 77 kg

DRUGS (9)
  1. PEMETREXED DISODIUM [Suspect]
     Indication: NON-SMALL CELL LUNG CANCER
     Dosage: VIAL
     Route: 042
     Dates: start: 20111017, end: 20111101
  2. FOLIC ACID [Concomitant]
     Dates: start: 20110929
  3. CARBOPLATIN [Suspect]
     Indication: NON-SMALL CELL LUNG CANCER
     Dosage: 1DF=AUC 6,ON DAY 1 OF A 3WEEK
     Route: 042
     Dates: start: 20111017, end: 20111101
  4. VITAMIN B-12 [Concomitant]
     Dates: start: 20110929
  5. ATIVAN [Concomitant]
     Dates: start: 20111017
  6. PAROXETINE [Concomitant]
     Dates: start: 20110705
  7. PERCOCET [Concomitant]
     Dates: start: 20111017
  8. DEXAMETHASONE [Concomitant]
     Dates: start: 20111016
  9. ALOXI [Concomitant]
     Dates: start: 20111017

REACTIONS (5)
  - MALIGNANT PLEURAL EFFUSION [None]
  - VOMITING [None]
  - NAUSEA [None]
  - DIARRHOEA [None]
  - HEPATIC LESION [None]
